APPROVED DRUG PRODUCT: MINOCYCLINE HYDROCHLORIDE
Active Ingredient: MINOCYCLINE HYDROCHLORIDE
Strength: EQ 105MG BASE
Dosage Form/Route: TABLET, EXTENDED RELEASE;ORAL
Application: A203443 | Product #003
Applicant: RISING PHARMA HOLDINGS INC
Approved: Aug 22, 2014 | RLD: No | RS: No | Type: DISCN